FAERS Safety Report 7283051-1 (Version None)
Quarter: 2011Q1

REPORT INFORMATION
  Report Type: 
  Country: None (occurrence: None)
  Receive Date: 20110209
  Receipt Date: 20110203
  Transmission Date: 20110831
  Serious: Yes (Hospitalization)
  Sender: FDA-Public Use
  Company Number: FR-ROCHE-723082

PATIENT
  Sex: Female
  Weight: 60 kg

DRUGS (6)
  1. DOCETAXEL [Suspect]
     Dosage: DOSAGE FORM: 80 MG
     Route: 042
     Dates: start: 20100812, end: 20100812
  2. DOCETAXEL [Suspect]
     Dosage: DOSE REDUCED, LAST DOSE RECEIVED ON 04 NOV 2010
     Route: 042
     Dates: start: 20100902
  3. BEVACIZUMAB [Suspect]
     Route: 042
     Dates: start: 20110128
  4. BEVACIZUMAB [Suspect]
     Dosage: DOSE FORM: 400/100 MG.
     Route: 042
     Dates: start: 20100812
  5. DOCETAXEL [Suspect]
     Route: 042
     Dates: start: 20101104
  6. BEVACIZUMAB [Suspect]
     Dosage: CYCLE 2, LAST DOSE PRIOR TO SAE: 04 NOV 2010
     Route: 042
     Dates: start: 20100902

REACTIONS (2)
  - PYREXIA [None]
  - FEBRILE NEUTROPENIA [None]
